FAERS Safety Report 19856276 (Version 1)
Quarter: 2021Q3

REPORT INFORMATION
  Report Type: Spontaneous
  Country: FR (occurrence: FR)
  Receive Date: 20210920
  Receipt Date: 20210920
  Transmission Date: 20211014
  Serious: Yes (Disabling)
  Sender: FDA-Public Use
  Company Number: FR-TEVA-2021-FR-1953660

PATIENT
  Age: 80 Year
  Sex: Female
  Weight: 57 kg

DRUGS (5)
  1. BISOPROLOL (FUMARATE ACIDE DE) [Suspect]
     Active Substance: BISOPROLOL FUMARATE
     Indication: CARDIAC DISORDER
     Dosage: 1 DOSAGE FORMS DAILY; 1 TABLET / DAY
     Route: 048
  2. TEMESTA 1 MG, COMPRIME SECABLE [Suspect]
     Active Substance: LORAZEPAM
     Indication: ANXIETY
     Dosage: .5 DOSAGE FORMS DAILY; 1/2 TABLET / DAY:SCORED:UNIT DOSE:0.5DOSAGEFORM
     Route: 048
  3. DONEPEZIL BIOGARAN 10 MG, COMPRIME PELLICULE [Suspect]
     Active Substance: DONEPEZIL HYDROCHLORIDE
     Indication: DEMENTIA ALZHEIMER^S TYPE
     Dosage: 1 DOSAGE FORMS DAILY; 1 TABLET / DAY
     Route: 048
  4. CIFLOX (CIPROFLOXACIN) [Suspect]
     Active Substance: CIPROFLOXACIN
     Indication: INFECTION
     Dosage: 1 DOSAGE FORMS DAILY; 1 TABLET / DAY
     Route: 048
     Dates: start: 20210723, end: 20210731
  5. MIANSERINE ALMUS 10 MG, COMPRIME PELLICULE [Suspect]
     Active Substance: MIANSERIN HYDROCHLORIDE
     Indication: DEPRESSION
     Dosage: 1 DOSAGE FORMS DAILY; 1 TABLET / DAY
     Route: 048

REACTIONS (1)
  - Musculoskeletal stiffness [Not Recovered/Not Resolved]

NARRATIVE: CASE EVENT DATE: 20210726
